FAERS Safety Report 4411787-6 (Version None)
Quarter: 2004Q3

REPORT INFORMATION
  Report Type: 
  Country: None (occurrence: None)
  Receive Date: 20040730
  Receipt Date: 20040716
  Transmission Date: 20050211
  Serious: Yes (Hospitalization)
  Sender: FDA-Public Use
  Company Number: 200412727FR

PATIENT
  Age: 83 Year
  Sex: Male

DRUGS (4)
  1. OFLOCET [Suspect]
     Indication: DIARRHOEA INFECTIOUS
     Route: 048
     Dates: start: 20030722, end: 20030802
  2. FLAGYL [Suspect]
     Indication: DIARRHOEA INFECTIOUS
     Route: 048
     Dates: start: 20030722, end: 20030829
  3. ALDACTONE [Concomitant]
     Indication: CARDIAC FAILURE
     Route: 048
     Dates: end: 20030802
  4. TRIFLUCAN [Concomitant]
     Indication: OROPHARYNGEAL CANDIDIASIS
     Route: 048
     Dates: start: 20030722, end: 20030802

REACTIONS (6)
  - CLONUS [None]
  - CONVULSION [None]
  - ELECTROENCEPHALOGRAM ABNORMAL [None]
  - EYE ROLLING [None]
  - LOSS OF CONSCIOUSNESS [None]
  - MALAISE [None]
